FAERS Safety Report 4817741-4 (Version None)
Quarter: 2005Q3

REPORT INFORMATION
  Report Type: 
  Country: None (occurrence: None)
  Receive Date: 20050929
  Receipt Date: 20050729
  Transmission Date: 20060218
  Serious: No
  Sender: FDA-Public Use
  Company Number: 05P-163-0307007-00

PATIENT
  Age: 53 Year
  Sex: Female
  Weight: 54.4316 kg

DRUGS (4)
  1. HUMIRA [Suspect]
     Indication: RHEUMATOID ARTHRITIS
     Dosage: 40 MG, 1 IN 2 WK, SUBCUTANEOUS
     Route: 058
     Dates: start: 20050601, end: 20050701
  2. METHOTREXATE [Concomitant]
  3. MULTI-VITAMINS [Concomitant]
  4. RALOXIFENE HYDROCHLORIDE [Concomitant]

REACTIONS (2)
  - ARTHRITIS [None]
  - FACIAL PAIN [None]
